FAERS Safety Report 12270511 (Version 1)
Quarter: 2016Q2

REPORT INFORMATION
  Report Type: Spontaneous
  Country: None (occurrence: None)
  Receive Date: 20160414
  Receipt Date: 20160414
  Transmission Date: 20160815
  Serious: Yes (Hospitalization)
  Sender: FDA-Public Use
  Company Number: None

PATIENT
  Age: 71 Year
  Sex: Male
  Weight: 87.5 kg

DRUGS (2)
  1. PRALATREXATE [Suspect]
     Active Substance: PRALATREXATE
     Indication: T-CELL LYMPHOMA
     Route: 042
     Dates: start: 20160330
  2. ROMIDEPSIN [Suspect]
     Active Substance: ROMIDEPSIN
     Route: 042
     Dates: start: 20160330

REACTIONS (4)
  - Gastrointestinal haemorrhage [None]
  - Mass [None]
  - Vitreous disorder [None]
  - Diplopia [None]

NARRATIVE: CASE EVENT DATE: 20160408
